FAERS Safety Report 18308633 (Version 1)
Quarter: 2020Q3

REPORT INFORMATION
  Report Type: Spontaneous
  Country: IN (occurrence: IN)
  Receive Date: 20200924
  Receipt Date: 20200924
  Transmission Date: 20201103
  Serious: Yes (Death, Hospitalization)
  Sender: FDA-Public Use
  Company Number: IN-MYLANLABS-2020M1080710

PATIENT
  Age: 26 Year
  Sex: Male

DRUGS (1)
  1. ACICLOVIR [Suspect]
     Active Substance: ACYCLOVIR
     Indication: ORAL HERPES
     Dosage: 400 MILLIGRAM, TID 3 TIMES A DAY
     Route: 048

REACTIONS (5)
  - Stevens-Johnson syndrome [Fatal]
  - Acute kidney injury [Unknown]
  - Acute respiratory distress syndrome [Unknown]
  - Depressed level of consciousness [Unknown]
  - Toxic epidermal necrolysis [Fatal]
